FAERS Safety Report 14188588 (Version 1)
Quarter: 2017Q4

REPORT INFORMATION
  Report Type: Spontaneous
  Country: IT (occurrence: IT)
  Receive Date: 20171114
  Receipt Date: 20171114
  Transmission Date: 20180321
  Serious: Yes (Hospitalization)
  Sender: FDA-Public Use
  Company Number: IT-ASTRAZENECA-2017SF14464

PATIENT
  Age: 23589 Day
  Sex: Female
  Weight: 65 kg

DRUGS (1)
  1. MEPRAL [Suspect]
     Active Substance: OMEPRAZOLE SODIUM
     Indication: GASTRIC DISORDER
     Route: 048
     Dates: start: 20170101, end: 20171030

REACTIONS (3)
  - Nystagmus [Recovered/Resolved]
  - Tremor [Recovered/Resolved]
  - Hypomagnesaemia [Recovered/Resolved]

NARRATIVE: CASE EVENT DATE: 20171029
